FAERS Safety Report 4835994-3 (Version None)
Quarter: 2005Q4

REPORT INFORMATION
  Report Type: 
  Country: None (occurrence: None)
  Receive Date: 20051123
  Receipt Date: 20051109
  Transmission Date: 20060501
  Serious: Yes (Life-Threatening, Hospitalization, Disabling)
  Sender: FDA-Public Use
  Company Number: GBWYE129210NOV05

PATIENT
  Age: 34 Year

DRUGS (5)
  1. ENBREL [Suspect]
     Indication: RHEUMATOID ARTHRITIS
     Dosage: UNKNOWN
  2. DICLOFENAC [Concomitant]
     Indication: RHEUMATOID ARTHRITIS
     Route: 048
  3. INFLIXIMAB [Concomitant]
     Indication: RHEUMATOID ARTHRITIS
     Dosage: 3MG/KG
     Route: 042
  4. ADALIMUMAB [Concomitant]
     Indication: RHEUMATOID ARTHRITIS
     Dosage: UNKNOWN
     Route: 058
     Dates: start: 20041201, end: 20050201
  5. METHOTREXATE [Concomitant]

REACTIONS (5)
  - ARM AMPUTATION [None]
  - FASCIITIS [None]
  - ISCHAEMIA [None]
  - URTICARIA [None]
  - VESSEL PUNCTURE SITE REACTION [None]
